FAERS Safety Report 23138760 (Version 1)
Quarter: 2023Q4

REPORT INFORMATION
  Report Type: Spontaneous
  Country: IT (occurrence: IT)
  Receive Date: 20231102
  Receipt Date: 20231102
  Transmission Date: 20240110
  Serious: Yes (Other)
  Sender: FDA-Public Use
  Company Number: None

PATIENT
  Sex: Male

DRUGS (1)
  1. FINASTERIDE [Suspect]
     Active Substance: FINASTERIDE
     Indication: Alopecia
     Dosage: 1-3 YEARS
     Route: 065

REACTIONS (13)
  - Erectile dysfunction [Unknown]
  - Memory impairment [Unknown]
  - Fatigue [Unknown]
  - Loss of libido [Unknown]
  - Vision blurred [Unknown]
  - Impaired quality of life [Unknown]
  - Arthralgia [Unknown]
  - Bone pain [Unknown]
  - Disturbance in attention [Unknown]
  - Social problem [Unknown]
  - Libido decreased [Unknown]
  - Drug effect less than expected [Unknown]
  - Product communication issue [Unknown]
